FAERS Safety Report 9099967 (Version 1)
Quarter: 2013Q1

REPORT INFORMATION
  Report Type: Spontaneous
  Country: GB (occurrence: GB)
  Receive Date: 20130214
  Receipt Date: 20130214
  Transmission Date: 20140127
  Serious: Yes (Other)
  Sender: FDA-Public Use
  Company Number: GB-ROCHE-1190513

PATIENT
  Age: 42 Year
  Sex: Male
  Weight: 67 kg

DRUGS (8)
  1. PEGASYS [Suspect]
     Indication: PRODUCT USED FOR UNKNOWN INDICATION
     Route: 065
     Dates: start: 20121123
  2. PEGASYS [Suspect]
     Indication: OFF LABEL USE
  3. RIBAVIRIN [Suspect]
     Indication: PRODUCT USED FOR UNKNOWN INDICATION
     Route: 048
     Dates: start: 20121123
  4. RIBAVIRIN [Suspect]
     Indication: OFF LABEL USE
  5. INCIVO [Suspect]
     Indication: PRODUCT USED FOR UNKNOWN INDICATION
     Route: 048
     Dates: start: 20121123
  6. INCIVO [Suspect]
     Indication: OFF LABEL USE
  7. RALTEGRAVIR [Concomitant]
     Indication: PRODUCT USED FOR UNKNOWN INDICATION
     Route: 065
     Dates: start: 20121012
  8. TRUVADA [Concomitant]
     Route: 065
     Dates: start: 20121012

REACTIONS (2)
  - Blood bilirubin increased [Recovered/Resolved]
  - Ocular icterus [Unknown]
